FAERS Safety Report 24936790 (Version 2)
Quarter: 2025Q3

REPORT INFORMATION
  Report Type: Spontaneous
  Country: EU (occurrence: EU)
  Receive Date: 20250206
  Receipt Date: 20250802
  Transmission Date: 20251021
  Serious: Yes (Other)
  Sender: ALEXION PHARMACEUTICALS
  Company Number: EU-AstraZeneca-CH-00799019A

PATIENT
  Sex: Male

DRUGS (1)
  1. DAPAGLIFLOZIN [Suspect]
     Active Substance: DAPAGLIFLOZIN
     Indication: Diabetes mellitus
     Dates: start: 202409

REACTIONS (2)
  - Orchitis [Not Recovered/Not Resolved]
  - Prostatitis [Not Recovered/Not Resolved]

NARRATIVE: CASE EVENT DATE: 20250101
